FAERS Safety Report 11219364 (Version 1)
Quarter: 2015Q2

REPORT INFORMATION
  Report Type: Spontaneous
  Country: JP (occurrence: JP)
  Receive Date: 20150625
  Receipt Date: 20150625
  Transmission Date: 20150821
  Serious: Yes (Death, Hospitalization)
  Sender: FDA-Public Use
  Company Number: JP-BAYER-2015-318555

PATIENT
  Age: 73 Year
  Sex: Male

DRUGS (1)
  1. STIVARGA [Suspect]
     Active Substance: REGORAFENIB
     Indication: GASTROINTESTINAL STROMAL TUMOUR
     Dosage: 120 MG, QD
     Route: 048
     Dates: start: 20150508

REACTIONS (5)
  - Gamma-glutamyltransferase increased [None]
  - Pneumonia [Recovered/Resolved]
  - Pain [None]
  - Metastases to liver [Fatal]
  - C-reactive protein increased [None]
